FAERS Safety Report 11539864 (Version 1)
Quarter: 2015Q3

REPORT INFORMATION
  Report Type: Spontaneous
  Country: FR (occurrence: FR)
  Receive Date: 20150923
  Receipt Date: 20150923
  Transmission Date: 20151125
  Serious: Yes (Hospitalization)
  Sender: FDA-Public Use
  Company Number: FR-PFIZER INC-2015311312

PATIENT
  Age: 82 Year
  Sex: Female

DRUGS (20)
  1. VITABACT [Concomitant]
     Active Substance: PICLOXYDINE DIHYDROCHLORIDE
  2. SPIRIVA [Concomitant]
     Active Substance: TIOTROPIUM BROMIDE MONOHYDRATE
  3. PANTOPRAZOLE [Concomitant]
     Active Substance: PANTOPRAZOLE SODIUM
  4. DOLIPRANE [Concomitant]
     Active Substance: ACETAMINOPHEN
  5. KARDEGIC [Concomitant]
     Active Substance: ASPIRIN LYSINE
  6. ZELITREX [Concomitant]
     Active Substance: VALACYCLOVIR HYDROCHLORIDE
  7. VFEND [Interacting]
     Active Substance: VORICONAZOLE
     Indication: LUNG DISORDER
     Dosage: 400 G, 2X/DAY
     Route: 048
     Dates: start: 20150806
  8. CONTRAMAL [Interacting]
     Active Substance: TRAMADOL HYDROCHLORIDE
     Indication: PAIN
     Dosage: 300 MG, 1X/DAY
     Route: 042
     Dates: start: 20150803, end: 20150805
  9. ATARAX [Suspect]
     Active Substance: HYDROXYZINE\HYDROXYZINE HYDROCHLORIDE
     Dosage: 25 MG, SINGLE
     Route: 048
     Dates: start: 20150802, end: 20150802
  10. LERCANIDIPINE HYDROCHLORIDE [Concomitant]
     Active Substance: LERCANIDIPINE HYDROCHLORIDE
  11. CALCIPARINE [Concomitant]
     Active Substance: HEPARIN CALCIUM
  12. HALDOL [Concomitant]
     Active Substance: HALOPERIDOL
  13. PRIVIGEN [Concomitant]
     Active Substance: HUMAN IMMUNOGLOBULIN G
  14. CALCIDOSE /00944201/ [Concomitant]
     Active Substance: CALCIUM CARBONATE\CHOLECALCIFEROL
  15. ZYMA-D2 [Concomitant]
     Active Substance: ERGOCALCIFEROL
  16. ACUPAN [Concomitant]
     Active Substance: NEFOPAM HYDROCHLORIDE
  17. SPECIAFOLDINE [Concomitant]
     Active Substance: FOLIC ACID
  18. MOVICOL [Concomitant]
     Active Substance: POLYETHYLENE GLYCOL 3350\POTASSIUM CHLORIDE\SODIUM BICARBONATE\SODIUM CHLORIDE
  19. ARANESP [Concomitant]
     Active Substance: DARBEPOETIN ALFA
  20. LASILIX /00032601/ [Concomitant]
     Active Substance: FUROSEMIDE

REACTIONS (4)
  - Drug interaction [Recovered/Resolved]
  - Confusional state [Recovered/Resolved]
  - Hallucination [Recovered/Resolved]
  - Headache [Recovered/Resolved]

NARRATIVE: CASE EVENT DATE: 201508
